FAERS Safety Report 23968924 (Version 4)
Quarter: 2025Q1

REPORT INFORMATION
  Report Type: Spontaneous
  Country: CA (occurrence: CA)
  Receive Date: 20240612
  Receipt Date: 20250219
  Transmission Date: 20250409
  Serious: Yes (Death, Life-Threatening, Hospitalization, Disabling, Congenital Anomaly, Other)
  Sender: SANDOZ
  Company Number: CA-SANDOZ-SDZ2024CA056529

PATIENT
  Age: 40 Year
  Sex: Female

DRUGS (477)
  1. ADALIMUMAB [Suspect]
     Active Substance: ADALIMUMAB
     Indication: Rheumatoid arthritis
     Route: 058
  2. ADALIMUMAB [Suspect]
     Active Substance: ADALIMUMAB
     Route: 058
  3. ADALIMUMAB [Suspect]
     Active Substance: ADALIMUMAB
     Route: 058
  4. ADALIMUMAB [Suspect]
     Active Substance: ADALIMUMAB
     Route: 058
  5. ALENDRONATE SODIUM [Suspect]
     Active Substance: ALENDRONATE SODIUM
     Indication: Rheumatoid arthritis
     Route: 048
  6. ACETAMINOPHEN [Suspect]
     Active Substance: ACETAMINOPHEN
     Indication: Rheumatoid arthritis
     Route: 065
  7. ACETAMINOPHEN [Suspect]
     Active Substance: ACETAMINOPHEN
     Route: 065
  8. ACETAMINOPHEN [Suspect]
     Active Substance: ACETAMINOPHEN
     Route: 065
  9. ACETAMINOPHEN [Suspect]
     Active Substance: ACETAMINOPHEN
     Route: 065
  10. ACETAMINOPHEN [Suspect]
     Active Substance: ACETAMINOPHEN
     Route: 065
  11. ACETAMINOPHEN [Suspect]
     Active Substance: ACETAMINOPHEN
     Route: 065
  12. ACTEMRA [Suspect]
     Active Substance: TOCILIZUMAB
     Route: 058
  13. ACTEMRA [Suspect]
     Active Substance: TOCILIZUMAB
     Route: 065
  14. ACTEMRA [Suspect]
     Active Substance: TOCILIZUMAB
     Dosage: 25 MG, QW
     Route: 058
  15. ACTEMRA [Suspect]
     Active Substance: TOCILIZUMAB
     Route: 042
  16. ACTEMRA [Suspect]
     Active Substance: TOCILIZUMAB
     Route: 058
  17. ACTEMRA [Suspect]
     Active Substance: TOCILIZUMAB
     Route: 042
  18. ACTEMRA [Suspect]
     Active Substance: TOCILIZUMAB
     Route: 042
  19. ACTEMRA [Suspect]
     Active Substance: TOCILIZUMAB
     Route: 058
  20. ACTEMRA [Suspect]
     Active Substance: TOCILIZUMAB
     Route: 042
  21. ACTEMRA [Suspect]
     Active Substance: TOCILIZUMAB
     Route: 058
  22. ACTEMRA [Suspect]
     Active Substance: TOCILIZUMAB
     Route: 065
  23. ACTEMRA [Suspect]
     Active Substance: TOCILIZUMAB
     Route: 042
  24. ACTEMRA [Suspect]
     Active Substance: TOCILIZUMAB
     Indication: Rheumatoid arthritis
     Route: 042
  25. ACTEMRA [Suspect]
     Active Substance: TOCILIZUMAB
     Route: 058
  26. ACTEMRA [Suspect]
     Active Substance: TOCILIZUMAB
     Route: 016
  27. ACTEMRA [Suspect]
     Active Substance: TOCILIZUMAB
     Route: 058
  28. ACTEMRA [Suspect]
     Active Substance: TOCILIZUMAB
     Route: 061
  29. ACTEMRA [Suspect]
     Active Substance: TOCILIZUMAB
     Route: 065
  30. AIMOVIG [Suspect]
     Active Substance: ERENUMAB-AOOE
     Indication: Migraine
     Route: 065
  31. AIMOVIG [Suspect]
     Active Substance: ERENUMAB-AOOE
     Route: 065
  32. ALENDRONIC ACID [Suspect]
     Active Substance: ALENDRONIC ACID
     Route: 016
  33. ALENDRONIC ACID [Suspect]
     Active Substance: ALENDRONIC ACID
     Route: 048
  34. ALENDRONIC ACID [Suspect]
     Active Substance: ALENDRONIC ACID
     Route: 048
  35. ALENDRONIC ACID [Suspect]
     Active Substance: ALENDRONIC ACID
     Route: 048
  36. ALENDRONIC ACID [Suspect]
     Active Substance: ALENDRONIC ACID
     Indication: Rheumatoid arthritis
     Route: 065
  37. ALENDRONIC ACID [Suspect]
     Active Substance: ALENDRONIC ACID
     Route: 065
  38. ALENDRONIC ACID [Suspect]
     Active Substance: ALENDRONIC ACID
     Route: 065
  39. ALENDRONIC ACID [Suspect]
     Active Substance: ALENDRONIC ACID
     Route: 065
  40. DICLOFENAC SODIUM [Suspect]
     Active Substance: DICLOFENAC SODIUM
     Indication: Product used for unknown indication
     Route: 065
  41. LEFLUNOMIDE [Suspect]
     Active Substance: LEFLUNOMIDE
     Route: 048
  42. LEFLUNOMIDE [Suspect]
     Active Substance: LEFLUNOMIDE
     Route: 065
  43. LEFLUNOMIDE [Suspect]
     Active Substance: LEFLUNOMIDE
     Indication: Rheumatoid arthritis
     Route: 065
  44. PREDNISONE [Suspect]
     Active Substance: PREDNISONE
     Route: 065
  45. PREDNISONE [Suspect]
     Active Substance: PREDNISONE
     Indication: Rheumatoid arthritis
     Route: 048
  46. PREDNISONE [Suspect]
     Active Substance: PREDNISONE
     Route: 065
  47. PREDNISONE [Suspect]
     Active Substance: PREDNISONE
     Route: 048
  48. PREDNISONE [Suspect]
     Active Substance: PREDNISONE
     Route: 065
  49. PREDNISONE [Suspect]
     Active Substance: PREDNISONE
     Route: 065
  50. PREDNISONE [Suspect]
     Active Substance: PREDNISONE
     Route: 048
  51. PREDNISONE [Suspect]
     Active Substance: PREDNISONE
     Route: 048
  52. PREDNISONE [Suspect]
     Active Substance: PREDNISONE
     Route: 048
  53. PREDNISONE [Suspect]
     Active Substance: PREDNISONE
     Route: 048
  54. PREDNISONE [Suspect]
     Active Substance: PREDNISONE
     Route: 065
  55. APREMILAST [Suspect]
     Active Substance: APREMILAST
     Route: 065
  56. APREMILAST [Suspect]
     Active Substance: APREMILAST
     Indication: Rheumatoid arthritis
     Route: 065
  57. APREMILAST [Suspect]
     Active Substance: APREMILAST
     Route: 065
  58. APREMILAST [Suspect]
     Active Substance: APREMILAST
     Route: 065
  59. APREMILAST [Suspect]
     Active Substance: APREMILAST
     Route: 065
  60. APREMILAST [Suspect]
     Active Substance: APREMILAST
     Route: 065
  61. ARAVA [Suspect]
     Active Substance: LEFLUNOMIDE
     Route: 048
  62. ARAVA [Suspect]
     Active Substance: LEFLUNOMIDE
     Route: 048
  63. ARAVA [Suspect]
     Active Substance: LEFLUNOMIDE
     Route: 048
  64. ARAVA [Suspect]
     Active Substance: LEFLUNOMIDE
     Indication: Rheumatoid arthritis
     Route: 048
  65. ARAVA [Suspect]
     Active Substance: LEFLUNOMIDE
     Route: 065
  66. ARAVA [Suspect]
     Active Substance: LEFLUNOMIDE
     Route: 065
  67. ARAVA [Suspect]
     Active Substance: LEFLUNOMIDE
     Route: 065
  68. BERINERT [Suspect]
     Active Substance: HUMAN C1-ESTERASE INHIBITOR
     Indication: Product used for unknown indication
     Route: 065
  69. BOTULINUM TOXIN TYPE A [Suspect]
     Active Substance: BOTULINUM TOXIN TYPE A
     Indication: Product used for unknown indication
     Route: 065
  70. BUTRANS [Suspect]
     Active Substance: BUPRENORPHINE
     Indication: Product used for unknown indication
     Route: 065
  71. CANDESARTAN [Suspect]
     Active Substance: CANDESARTAN
     Indication: Migraine
     Route: 065
  72. CELECOXIB [Suspect]
     Active Substance: CELECOXIB
     Indication: Migraine
     Route: 065
  73. CELECOXIB [Suspect]
     Active Substance: CELECOXIB
     Route: 048
  74. CALCIUM [Suspect]
     Active Substance: CALCIUM
     Indication: Product used for unknown indication
     Route: 065
  75. CERTOLIZUMAB PEGOL [Suspect]
     Active Substance: CERTOLIZUMAB PEGOL
     Indication: Product used for unknown indication
     Route: 058
  76. CERTOLIZUMAB PEGOL [Suspect]
     Active Substance: CERTOLIZUMAB PEGOL
     Route: 058
  77. CERTOLIZUMAB PEGOL [Suspect]
     Active Substance: CERTOLIZUMAB PEGOL
     Route: 058
  78. CERTOLIZUMAB PEGOL [Suspect]
     Active Substance: CERTOLIZUMAB PEGOL
     Route: 065
  79. CERTOLIZUMAB PEGOL [Suspect]
     Active Substance: CERTOLIZUMAB PEGOL
     Route: 065
  80. CERTOLIZUMAB PEGOL [Suspect]
     Active Substance: CERTOLIZUMAB PEGOL
     Route: 065
  81. CETIRIZINE [Suspect]
     Active Substance: CETIRIZINE HYDROCHLORIDE
     Indication: Product used for unknown indication
     Route: 065
  82. CETIRIZINE HYDROCHLORIDE [Suspect]
     Active Substance: CETIRIZINE HYDROCHLORIDE
     Indication: Rheumatoid arthritis
     Route: 048
  83. CETIRIZINE HYDROCHLORIDE [Suspect]
     Active Substance: CETIRIZINE HYDROCHLORIDE
     Route: 065
  84. CETIRIZINE HYDROCHLORIDE [Suspect]
     Active Substance: CETIRIZINE HYDROCHLORIDE
     Route: 065
  85. CETIRIZINE HYDROCHLORIDE [Suspect]
     Active Substance: CETIRIZINE HYDROCHLORIDE
     Route: 065
  86. CETIRIZINE HYDROCHLORIDE [Suspect]
     Active Substance: CETIRIZINE HYDROCHLORIDE
     Route: 065
  87. CETIRIZINE HYDROCHLORIDE [Suspect]
     Active Substance: CETIRIZINE HYDROCHLORIDE
     Route: 065
  88. CETIRIZINE HYDROCHLORIDE [Suspect]
     Active Substance: CETIRIZINE HYDROCHLORIDE
     Route: 065
  89. CETIRIZINE HYDROCHLORIDE [Suspect]
     Active Substance: CETIRIZINE HYDROCHLORIDE
     Route: 065
  90. CETIRIZINE HYDROCHLORIDE [Suspect]
     Active Substance: CETIRIZINE HYDROCHLORIDE
     Indication: Rheumatoid arthritis
     Route: 065
  91. CETIRIZINE HYDROCHLORIDE [Suspect]
     Active Substance: CETIRIZINE HYDROCHLORIDE
     Route: 048
  92. CETIRIZINE HYDROCHLORIDE [Suspect]
     Active Substance: CETIRIZINE HYDROCHLORIDE
     Route: 048
  93. CETIRIZINE HYDROCHLORIDE [Suspect]
     Active Substance: CETIRIZINE HYDROCHLORIDE
     Route: 048
  94. CETIRIZINE HYDROCHLORIDE [Suspect]
     Active Substance: CETIRIZINE HYDROCHLORIDE
     Route: 065
  95. CETIRIZINE HYDROCHLORIDE [Suspect]
     Active Substance: CETIRIZINE HYDROCHLORIDE
     Route: 065
  96. CETIRIZINE HYDROCHLORIDE [Suspect]
     Active Substance: CETIRIZINE HYDROCHLORIDE
     Route: 065
  97. CETIRIZINE HYDROCHLORIDE [Suspect]
     Active Substance: CETIRIZINE HYDROCHLORIDE
     Route: 065
  98. CETIRIZINE HYDROCHLORIDE [Suspect]
     Active Substance: CETIRIZINE HYDROCHLORIDE
     Route: 065
  99. CETIRIZINE HYDROCHLORIDE [Suspect]
     Active Substance: CETIRIZINE HYDROCHLORIDE
     Route: 065
  100. CETIRIZINE HYDROCHLORIDE [Suspect]
     Active Substance: CETIRIZINE HYDROCHLORIDE
     Route: 065
  101. CETIRIZINE HYDROCHLORIDE [Suspect]
     Active Substance: CETIRIZINE HYDROCHLORIDE
     Route: 065
  102. CETIRIZINE HYDROCHLORIDE [Suspect]
     Active Substance: CETIRIZINE HYDROCHLORIDE
     Route: 016
  103. CETIRIZINE HYDROCHLORIDE [Suspect]
     Active Substance: CETIRIZINE HYDROCHLORIDE
     Route: 065
  104. CETIRIZINE HYDROCHLORIDE [Suspect]
     Active Substance: CETIRIZINE HYDROCHLORIDE
     Route: 065
  105. CETIRIZINE HYDROCHLORIDE [Suspect]
     Active Substance: CETIRIZINE HYDROCHLORIDE
     Route: 065
  106. CETIRIZINE HYDROCHLORIDE [Suspect]
     Active Substance: CETIRIZINE HYDROCHLORIDE
     Route: 065
  107. CETIRIZINE HYDROCHLORIDE [Suspect]
     Active Substance: CETIRIZINE HYDROCHLORIDE
     Route: 065
  108. CETIRIZINE HYDROCHLORIDE [Suspect]
     Active Substance: CETIRIZINE HYDROCHLORIDE
     Route: 065
  109. CETIRIZINE HYDROCHLORIDE [Suspect]
     Active Substance: CETIRIZINE HYDROCHLORIDE
     Route: 065
  110. CETIRIZINE HYDROCHLORIDE [Suspect]
     Active Substance: CETIRIZINE HYDROCHLORIDE
     Route: 065
  111. CHLORHEXIDINE GLUCONATE [Suspect]
     Active Substance: CHLORHEXIDINE GLUCONATE
     Route: 061
  112. CHLORHEXIDINE GLUCONATE [Suspect]
     Active Substance: CHLORHEXIDINE GLUCONATE
     Indication: Product used for unknown indication
     Route: 065
  113. CHLORHEXIDINE GLUCONATE [Suspect]
     Active Substance: CHLORHEXIDINE GLUCONATE
     Route: 065
  114. CHOLECALCIFEROL [Suspect]
     Active Substance: CHOLECALCIFEROL
     Indication: Product used for unknown indication
     Route: 065
  115. CIMZIA [Suspect]
     Active Substance: CERTOLIZUMAB PEGOL
     Route: 058
  116. CIMZIA [Suspect]
     Active Substance: CERTOLIZUMAB PEGOL
     Route: 058
  117. CIMZIA [Suspect]
     Active Substance: CERTOLIZUMAB PEGOL
     Route: 058
  118. CIMZIA [Suspect]
     Active Substance: CERTOLIZUMAB PEGOL
     Indication: Rheumatoid arthritis
     Route: 058
  119. CIMZIA [Suspect]
     Active Substance: CERTOLIZUMAB PEGOL
     Route: 058
  120. CIMZIA [Suspect]
     Active Substance: CERTOLIZUMAB PEGOL
     Indication: Psoriasis
     Route: 065
  121. CIMZIA [Suspect]
     Active Substance: CERTOLIZUMAB PEGOL
     Route: 065
  122. CIMZIA [Suspect]
     Active Substance: CERTOLIZUMAB PEGOL
     Route: 065
  123. COSENTYX [Suspect]
     Active Substance: SECUKINUMAB
     Indication: Psoriatic arthropathy
     Route: 065
  124. COSENTYX [Suspect]
     Active Substance: SECUKINUMAB
     Indication: Rheumatoid arthritis
     Route: 065
  125. COSENTYX [Suspect]
     Active Substance: SECUKINUMAB
     Route: 065
  126. DICLOFENAC SODIUM [Suspect]
     Active Substance: DICLOFENAC SODIUM
     Route: 065
  127. DICLOFENAC SODIUM [Suspect]
     Active Substance: DICLOFENAC SODIUM
     Route: 058
  128. DICLOFENAC SODIUM [Suspect]
     Active Substance: DICLOFENAC SODIUM
     Indication: Rheumatoid arthritis
     Route: 065
  129. DICLOFENAC SODIUM [Suspect]
     Active Substance: DICLOFENAC SODIUM
     Route: 065
  130. DESOXIMETASONE [Suspect]
     Active Substance: DESOXIMETASONE
     Route: 065
  131. DESOXIMETASONE [Suspect]
     Active Substance: DESOXIMETASONE
     Indication: Rheumatoid arthritis
     Route: 048
  132. DESOXIMETASONE [Suspect]
     Active Substance: DESOXIMETASONE
     Route: 048
  133. DESOXIMETASONE [Suspect]
     Active Substance: DESOXIMETASONE
     Route: 048
  134. DESOXIMETASONE [Suspect]
     Active Substance: DESOXIMETASONE
     Route: 065
  135. DESOXIMETASONE [Suspect]
     Active Substance: DESOXIMETASONE
     Indication: Rheumatoid arthritis
     Route: 065
  136. DESOXIMETASONE [Suspect]
     Active Substance: DESOXIMETASONE
     Route: 065
  137. DESOXIMETASONE [Suspect]
     Active Substance: DESOXIMETASONE
     Route: 065
  138. DESOXIMETASONE [Suspect]
     Active Substance: DESOXIMETASONE
     Route: 065
  139. DESOXIMETASONE [Suspect]
     Active Substance: DESOXIMETASONE
     Route: 065
  140. DESOXIMETASONE [Suspect]
     Active Substance: DESOXIMETASONE
     Route: 065
  141. DESOXIMETASONE [Suspect]
     Active Substance: DESOXIMETASONE
     Route: 048
  142. DESOXIMETASONE [Suspect]
     Active Substance: DESOXIMETASONE
     Route: 048
  143. DESOXIMETASONE [Suspect]
     Active Substance: DESOXIMETASONE
     Route: 048
  144. DESOXIMETASONE [Suspect]
     Active Substance: DESOXIMETASONE
     Route: 048
  145. DESOXIMETASONE [Suspect]
     Active Substance: DESOXIMETASONE
     Route: 048
  146. DESOXIMETASONE [Suspect]
     Active Substance: DESOXIMETASONE
     Route: 065
  147. DESOXIMETASONE [Suspect]
     Active Substance: DESOXIMETASONE
     Route: 065
  148. DICLOFENAC DIETHYLAMINE [Suspect]
     Active Substance: DICLOFENAC DIETHYLAMINE
     Indication: Product used for unknown indication
     Route: 065
  149. DOMPERIDONE MALEATE [Suspect]
     Active Substance: DOMPERIDONE MALEATE
     Indication: Product used for unknown indication
     Route: 065
  150. ETANERCEPT [Suspect]
     Active Substance: ETANERCEPT
     Indication: Rheumatoid arthritis
     Route: 058
  151. ETANERCEPT [Suspect]
     Active Substance: ETANERCEPT
     Route: 058
  152. ETANERCEPT [Suspect]
     Active Substance: ETANERCEPT
     Route: 058
  153. ETANERCEPT [Suspect]
     Active Substance: ETANERCEPT
     Route: 065
  154. ETANERCEPT [Suspect]
     Active Substance: ETANERCEPT
     Indication: Rheumatoid arthritis
     Route: 065
  155. ENBREL [Suspect]
     Active Substance: ETANERCEPT
     Indication: Rheumatoid arthritis
     Dosage: 10 MG, QW
     Route: 065
  156. ENBREL [Suspect]
     Active Substance: ETANERCEPT
     Route: 058
  157. ENBREL [Suspect]
     Active Substance: ETANERCEPT
     Dosage: 50 MG, QW
     Route: 058
  158. ENBREL [Suspect]
     Active Substance: ETANERCEPT
     Route: 058
  159. ENBREL [Suspect]
     Active Substance: ETANERCEPT
     Route: 058
  160. ENBREL [Suspect]
     Active Substance: ETANERCEPT
     Route: 058
  161. ENBREL [Suspect]
     Active Substance: ETANERCEPT
     Route: 058
  162. ENBREL [Suspect]
     Active Substance: ETANERCEPT
     Route: 058
  163. ENBREL [Suspect]
     Active Substance: ETANERCEPT
     Route: 058
  164. ENBREL [Suspect]
     Active Substance: ETANERCEPT
     Route: 058
  165. ENBREL [Suspect]
     Active Substance: ETANERCEPT
     Route: 058
  166. ENBREL [Suspect]
     Active Substance: ETANERCEPT
     Route: 058
  167. ENBREL [Suspect]
     Active Substance: ETANERCEPT
     Route: 058
  168. ENBREL [Suspect]
     Active Substance: ETANERCEPT
     Route: 065
  169. ENBREL [Suspect]
     Active Substance: ETANERCEPT
     Route: 065
  170. ENBREL [Suspect]
     Active Substance: ETANERCEPT
     Route: 065
  171. ENBREL [Suspect]
     Active Substance: ETANERCEPT
     Route: 065
  172. FOLIC ACID [Suspect]
     Active Substance: FOLIC ACID
     Route: 048
  173. FOLIC ACID [Suspect]
     Active Substance: FOLIC ACID
     Indication: Rheumatoid arthritis
     Route: 065
  174. FOLIC ACID [Suspect]
     Active Substance: FOLIC ACID
     Route: 065
  175. FOLIC ACID [Suspect]
     Active Substance: FOLIC ACID
     Route: 065
  176. FOLIC ACID [Suspect]
     Active Substance: FOLIC ACID
     Route: 048
  177. FOLIC ACID [Suspect]
     Active Substance: FOLIC ACID
     Route: 065
  178. FOLIC ACID [Suspect]
     Active Substance: FOLIC ACID
     Route: 048
  179. FOLIC ACID [Suspect]
     Active Substance: FOLIC ACID
     Route: 065
  180. FOLIC ACID [Suspect]
     Active Substance: FOLIC ACID
     Route: 065
  181. FOLIC ACID [Suspect]
     Active Substance: FOLIC ACID
     Route: 065
  182. FOLIC ACID [Suspect]
     Active Substance: FOLIC ACID
     Route: 065
  183. FOLIC ACID [Suspect]
     Active Substance: FOLIC ACID
     Route: 048
  184. FOLIC ACID [Suspect]
     Active Substance: FOLIC ACID
     Route: 065
  185. FOLIC ACID [Suspect]
     Active Substance: FOLIC ACID
     Route: 065
  186. FLUMETHASONE [Suspect]
     Active Substance: FLUMETHASONE
     Indication: Product used for unknown indication
     Route: 065
  187. FLUMETHASONE PIVALATE [Suspect]
     Active Substance: FLUMETHASONE PIVALATE
     Indication: Product used for unknown indication
     Route: 065
  188. FLUMETHASONE PIVALATE [Suspect]
     Active Substance: FLUMETHASONE PIVALATE
     Route: 065
  189. FOSAMAX [Suspect]
     Active Substance: ALENDRONATE SODIUM
     Route: 016
  190. FOSAMAX [Suspect]
     Active Substance: ALENDRONATE SODIUM
     Route: 048
  191. FOSAMAX [Suspect]
     Active Substance: ALENDRONATE SODIUM
     Indication: Rheumatoid arthritis
     Route: 065
  192. FOSAMAX [Suspect]
     Active Substance: ALENDRONATE SODIUM
     Route: 065
  193. FOSAMAX [Suspect]
     Active Substance: ALENDRONATE SODIUM
     Route: 065
  194. GOLD [Suspect]
     Active Substance: GOLD
     Indication: Product used for unknown indication
     Route: 065
  195. GOLD SODIUM THIOMALATE [Suspect]
     Active Substance: GOLD SODIUM THIOMALATE
     Indication: Product used for unknown indication
     Route: 065
  196. GOLIMUMAB [Suspect]
     Active Substance: GOLIMUMAB
     Indication: Prostatic specific antigen
     Route: 058
  197. GOLIMUMAB [Suspect]
     Active Substance: GOLIMUMAB
     Indication: Rheumatoid arthritis
     Route: 058
  198. GOLIMUMAB [Suspect]
     Active Substance: GOLIMUMAB
     Route: 065
  199. GOLIMUMAB [Suspect]
     Active Substance: GOLIMUMAB
     Route: 065
  200. HUMIRA [Suspect]
     Active Substance: ADALIMUMAB
     Indication: Rheumatoid arthritis
     Route: 058
  201. HUMIRA [Suspect]
     Active Substance: ADALIMUMAB
     Route: 058
  202. HUMIRA [Suspect]
     Active Substance: ADALIMUMAB
     Route: 058
  203. HUMIRA [Suspect]
     Active Substance: ADALIMUMAB
     Route: 058
  204. HUMIRA [Suspect]
     Active Substance: ADALIMUMAB
     Route: 065
  205. HUMIRA [Suspect]
     Active Substance: ADALIMUMAB
     Route: 065
  206. HYDROXYCHLOROQUINE [Suspect]
     Active Substance: HYDROXYCHLOROQUINE
     Route: 048
  207. HYDROXYCHLOROQUINE [Suspect]
     Active Substance: HYDROXYCHLOROQUINE
     Route: 065
  208. HYDROXYCHLOROQUINE [Suspect]
     Active Substance: HYDROXYCHLOROQUINE
     Route: 048
  209. HYDROXYCHLOROQUINE [Suspect]
     Active Substance: HYDROXYCHLOROQUINE
     Route: 048
  210. HYDROXYCHLOROQUINE [Suspect]
     Active Substance: HYDROXYCHLOROQUINE
     Route: 048
  211. HYDROXYCHLOROQUINE [Suspect]
     Active Substance: HYDROXYCHLOROQUINE
     Route: 048
  212. HYDROXYCHLOROQUINE [Suspect]
     Active Substance: HYDROXYCHLOROQUINE
     Route: 065
  213. HYDROXYCHLOROQUINE [Suspect]
     Active Substance: HYDROXYCHLOROQUINE
     Route: 065
  214. HYDROXYCHLOROQUINE [Suspect]
     Active Substance: HYDROXYCHLOROQUINE
     Route: 016
  215. HYDROXYCHLOROQUINE [Suspect]
     Active Substance: HYDROXYCHLOROQUINE
     Indication: Rheumatoid arthritis
     Route: 048
  216. HYDROXYCHLOROQUINE [Suspect]
     Active Substance: HYDROXYCHLOROQUINE
     Route: 048
  217. HYDROXYCHLOROQUINE [Suspect]
     Active Substance: HYDROXYCHLOROQUINE
     Route: 048
  218. HYDROXYCHLOROQUINE [Suspect]
     Active Substance: HYDROXYCHLOROQUINE
     Route: 058
  219. HYDROXYCHLOROQUINE [Suspect]
     Active Substance: HYDROXYCHLOROQUINE
     Route: 065
  220. HYDROXYCHLOROQUINE [Suspect]
     Active Substance: HYDROXYCHLOROQUINE
     Route: 065
  221. HYDROXYCHLOROQUINE [Suspect]
     Active Substance: HYDROXYCHLOROQUINE
     Route: 065
  222. HYDROXYCHLOROQUINE [Suspect]
     Active Substance: HYDROXYCHLOROQUINE
     Route: 065
  223. HYDROXYCHLOROQUINE [Suspect]
     Active Substance: HYDROXYCHLOROQUINE
     Route: 065
  224. HYDROXYCHLOROQUINE [Suspect]
     Active Substance: HYDROXYCHLOROQUINE
     Route: 065
  225. HYDROXYCHLOROQUINE SULFATE [Suspect]
     Active Substance: HYDROXYCHLOROQUINE SULFATE
     Route: 065
  226. HYDROXYCHLOROQUINE SULFATE [Suspect]
     Active Substance: HYDROXYCHLOROQUINE SULFATE
     Route: 048
  227. HYDROXYCHLOROQUINE SULFATE [Suspect]
     Active Substance: HYDROXYCHLOROQUINE SULFATE
     Indication: Rheumatoid arthritis
     Route: 065
  228. HYDROXYCHLOROQUINE SULFATE [Suspect]
     Active Substance: HYDROXYCHLOROQUINE SULFATE
     Route: 065
  229. HYDROXYCHLOROQUINE SULFATE [Suspect]
     Active Substance: HYDROXYCHLOROQUINE SULFATE
     Route: 065
  230. HYDROXYCHLOROQUINE SULFATE [Suspect]
     Active Substance: HYDROXYCHLOROQUINE SULFATE
     Route: 048
  231. HYDROXYCHLOROQUINE SULFATE [Suspect]
     Active Substance: HYDROXYCHLOROQUINE SULFATE
     Route: 048
  232. HYDROXYCHLOROQUINE SULFATE [Suspect]
     Active Substance: HYDROXYCHLOROQUINE SULFATE
     Route: 065
  233. HYDROXYCHLOROQUINE SULFATE [Suspect]
     Active Substance: HYDROXYCHLOROQUINE SULFATE
     Route: 065
  234. IMURAN [Suspect]
     Active Substance: AZATHIOPRINE
     Indication: Rheumatoid arthritis
     Route: 065
  235. INFLIXIMAB [Suspect]
     Active Substance: INFLIXIMAB
     Indication: Rheumatoid arthritis
     Route: 042
  236. INFLIXIMAB [Suspect]
     Active Substance: INFLIXIMAB
     Route: 042
  237. INFLIXIMAB [Suspect]
     Active Substance: INFLIXIMAB
     Route: 042
  238. INFLIXIMAB [Suspect]
     Active Substance: INFLIXIMAB
     Route: 065
  239. INFLIXIMAB [Suspect]
     Active Substance: INFLIXIMAB
     Route: 042
  240. INFLIXIMAB [Suspect]
     Active Substance: INFLIXIMAB
     Route: 065
  241. LEFLUNOMIDE [Suspect]
     Active Substance: LEFLUNOMIDE
     Route: 048
  242. LEFLUNOMIDE [Suspect]
     Active Substance: LEFLUNOMIDE
     Route: 065
  243. LEFLUNOMIDE [Suspect]
     Active Substance: LEFLUNOMIDE
     Indication: Rheumatoid arthritis
     Route: 065
  244. LEFLUNOMIDE [Suspect]
     Active Substance: LEFLUNOMIDE
     Route: 065
  245. LEFLUNOMIDE [Suspect]
     Active Substance: LEFLUNOMIDE
     Route: 048
  246. LEFLUNOMIDE [Suspect]
     Active Substance: LEFLUNOMIDE
     Route: 065
  247. LAMICTAL [Suspect]
     Active Substance: LAMOTRIGINE
     Indication: Product used for unknown indication
     Route: 048
  248. LAMICTAL [Suspect]
     Active Substance: LAMOTRIGINE
     Route: 048
  249. LAMICTAL [Suspect]
     Active Substance: LAMOTRIGINE
     Route: 048
  250. LAMICTAL [Suspect]
     Active Substance: LAMOTRIGINE
     Route: 048
  251. LAMICTAL [Suspect]
     Active Substance: LAMOTRIGINE
     Route: 048
  252. LAMICTAL [Suspect]
     Active Substance: LAMOTRIGINE
     Route: 048
  253. METHOTREXATE [Suspect]
     Active Substance: METHOTREXATE
     Route: 048
  254. METHOTREXATE [Suspect]
     Active Substance: METHOTREXATE
     Dosage: 15 MG, QW
     Route: 058
  255. METHOTREXATE [Suspect]
     Active Substance: METHOTREXATE
     Dosage: 20 MG, QW
     Route: 048
  256. METHOTREXATE [Suspect]
     Active Substance: METHOTREXATE
     Dosage: 20 MG, QW
     Route: 058
  257. METHOTREXATE [Suspect]
     Active Substance: METHOTREXATE
     Route: 065
  258. METHOTREXATE [Suspect]
     Active Substance: METHOTREXATE
     Dosage: 25 MG, QW
     Route: 013
  259. METHOTREXATE [Suspect]
     Active Substance: METHOTREXATE
     Dosage: 25 MG, QW
     Route: 048
  260. METHOTREXATE [Suspect]
     Active Substance: METHOTREXATE
     Dosage: 25 MG, QW
     Route: 065
  261. METHOTREXATE [Suspect]
     Active Substance: METHOTREXATE
     Dosage: 25 MG, QW
     Route: 065
  262. METHOTREXATE [Suspect]
     Active Substance: METHOTREXATE
     Indication: Rheumatoid arthritis
     Route: 013
  263. METHOTREXATE [Suspect]
     Active Substance: METHOTREXATE
     Route: 048
  264. METHOTREXATE [Suspect]
     Active Substance: METHOTREXATE
     Route: 048
  265. METHOTREXATE [Suspect]
     Active Substance: METHOTREXATE
     Route: 048
  266. METHOTREXATE [Suspect]
     Active Substance: METHOTREXATE
     Route: 065
  267. METHOTREXATE [Suspect]
     Active Substance: METHOTREXATE
     Route: 065
  268. METHOTREXATE [Suspect]
     Active Substance: METHOTREXATE
     Route: 065
  269. METHOTREXATE [Suspect]
     Active Substance: METHOTREXATE
     Route: 048
  270. METHOTREXATE [Suspect]
     Active Substance: METHOTREXATE
     Route: 048
  271. METHOTREXATE [Suspect]
     Active Substance: METHOTREXATE
     Route: 016
  272. METHOTREXATE [Suspect]
     Active Substance: METHOTREXATE
     Route: 048
  273. METHOTREXATE [Suspect]
     Active Substance: METHOTREXATE
     Route: 065
  274. METHOTREXATE [Suspect]
     Active Substance: METHOTREXATE
     Route: 065
  275. METHOTREXATE [Suspect]
     Active Substance: METHOTREXATE
     Indication: Product used for unknown indication
     Route: 065
  276. MEGLUMINE [Suspect]
     Active Substance: MEGLUMINE
     Indication: Rheumatoid arthritis
     Route: 042
  277. METHYLPREDNISOLONE [Suspect]
     Active Substance: METHYLPREDNISOLONE
     Indication: Rheumatoid arthritis
     Route: 065
  278. METHYLPREDNISOLONE SODIUM SUCCINATE [Suspect]
     Active Substance: METHYLPREDNISOLONE SODIUM SUCCINATE
     Indication: Rheumatoid arthritis
     Route: 065
  279. MINOCYCLINE [Suspect]
     Active Substance: MINOCYCLINE HYDROCHLORIDE
     Indication: Product used for unknown indication
     Route: 065
  280. MINOCYCLINE HYDROCHLORIDE [Suspect]
     Active Substance: MINOCYCLINE HYDROCHLORIDE
     Indication: Rheumatoid arthritis
     Route: 065
  281. MYOCHRYSINE [Suspect]
     Active Substance: GOLD SODIUM THIOMALATE
     Indication: Rheumatoid arthritis
     Route: 030
  282. MYRBETRIQ [Suspect]
     Active Substance: MIRABEGRON
     Indication: Rheumatoid arthritis
     Route: 065
  283. MYRBETRIQ [Suspect]
     Active Substance: MIRABEGRON
     Route: 065
  284. MYRBETRIQ [Suspect]
     Active Substance: MIRABEGRON
     Route: 065
  285. NAPROXEN [Suspect]
     Active Substance: NAPROXEN
     Indication: Product used for unknown indication
     Route: 065
  286. NAPROXEN SODIUM [Suspect]
     Active Substance: NAPROXEN SODIUM
     Indication: Rheumatoid arthritis
     Route: 065
  287. NUCALA [Suspect]
     Active Substance: MEPOLIZUMAB
     Indication: Product used for unknown indication
     Route: 065
  288. OXYCODONE [Suspect]
     Active Substance: OXYCODONE
     Indication: Product used for unknown indication
     Route: 065
  289. ORENCIA [Suspect]
     Active Substance: ABATACEPT
     Dosage: 125 MG, QW
     Route: 058
  290. ORENCIA [Suspect]
     Active Substance: ABATACEPT
     Route: 065
  291. ORENCIA [Suspect]
     Active Substance: ABATACEPT
     Route: 065
  292. ORENCIA [Suspect]
     Active Substance: ABATACEPT
     Route: 042
  293. ORENCIA [Suspect]
     Active Substance: ABATACEPT
     Route: 042
  294. ORENCIA [Suspect]
     Active Substance: ABATACEPT
     Route: 065
  295. ORENCIA [Suspect]
     Active Substance: ABATACEPT
     Indication: Rheumatoid arthritis
     Route: 042
  296. ORENCIA [Suspect]
     Active Substance: ABATACEPT
     Route: 042
  297. ORENCIA [Suspect]
     Active Substance: ABATACEPT
     Route: 058
  298. ORENCIA [Suspect]
     Active Substance: ABATACEPT
     Route: 065
  299. ORENCIA [Suspect]
     Active Substance: ABATACEPT
     Route: 065
  300. ORENCIA [Suspect]
     Active Substance: ABATACEPT
     Route: 065
  301. OXYCODONE TEREPHTHALATE [Suspect]
     Active Substance: OXYCODONE TEREPHTHALATE
     Indication: Product used for unknown indication
     Route: 065
  302. PHENYLEPHRINE HYDROCHLORIDE [Suspect]
     Active Substance: PHENYLEPHRINE HYDROCHLORIDE
     Indication: Rheumatoid arthritis
     Route: 065
  303. PHTHALYLSULFATHIAZOLE [Suspect]
     Active Substance: PHTHALYLSULFATHIAZOLE
     Route: 048
  304. PHTHALYLSULFATHIAZOLE [Suspect]
     Active Substance: PHTHALYLSULFATHIAZOLE
     Route: 065
  305. PHTHALYLSULFATHIAZOLE [Suspect]
     Active Substance: PHTHALYLSULFATHIAZOLE
     Route: 048
  306. PHTHALYLSULFATHIAZOLE [Suspect]
     Active Substance: PHTHALYLSULFATHIAZOLE
     Route: 042
  307. PHTHALYLSULFATHIAZOLE [Suspect]
     Active Substance: PHTHALYLSULFATHIAZOLE
     Route: 058
  308. PHTHALYLSULFATHIAZOLE [Suspect]
     Active Substance: PHTHALYLSULFATHIAZOLE
     Indication: Rheumatoid arthritis
     Route: 065
  309. PHTHALYLSULFATHIAZOLE [Suspect]
     Active Substance: PHTHALYLSULFATHIAZOLE
     Route: 065
  310. PHTHALYLSULFATHIAZOLE [Suspect]
     Active Substance: PHTHALYLSULFATHIAZOLE
     Route: 065
  311. PREDNISONE [Suspect]
     Active Substance: PREDNISONE
     Indication: Rheumatoid arthritis
     Route: 048
  312. PREDNISONE [Suspect]
     Active Substance: PREDNISONE
     Route: 065
  313. PREDNISONE [Suspect]
     Active Substance: PREDNISONE
     Route: 065
  314. PREDNISONE [Suspect]
     Active Substance: PREDNISONE
     Route: 048
  315. PREDNISONE [Suspect]
     Active Substance: PREDNISONE
     Route: 048
  316. PREDNISONE [Suspect]
     Active Substance: PREDNISONE
     Route: 065
  317. PREDNISONE [Suspect]
     Active Substance: PREDNISONE
     Route: 048
  318. PREDNISONE [Suspect]
     Active Substance: PREDNISONE
     Route: 048
  319. PREDNISONE [Suspect]
     Active Substance: PREDNISONE
     Route: 065
  320. PREDNISONE [Suspect]
     Active Substance: PREDNISONE
     Route: 065
  321. PSEUDOEPHEDRINE HYDROCHLORIDE [Suspect]
     Active Substance: PSEUDOEPHEDRINE HYDROCHLORIDE
     Route: 065
  322. PSEUDOEPHEDRINE HYDROCHLORIDE [Suspect]
     Active Substance: PSEUDOEPHEDRINE HYDROCHLORIDE
     Route: 065
  323. PSEUDOEPHEDRINE HYDROCHLORIDE [Suspect]
     Active Substance: PSEUDOEPHEDRINE HYDROCHLORIDE
     Route: 065
  324. PSEUDOEPHEDRINE HYDROCHLORIDE [Suspect]
     Active Substance: PSEUDOEPHEDRINE HYDROCHLORIDE
     Indication: Rheumatoid arthritis
     Route: 065
  325. RITUXIMAB [Suspect]
     Active Substance: RITUXIMAB
     Dosage: 1 G, Q24H
     Route: 042
  326. RITUXIMAB [Suspect]
     Active Substance: RITUXIMAB
     Route: 065
  327. RITUXIMAB [Suspect]
     Active Substance: RITUXIMAB
     Dosage: 1000 MG, BID 2 EVERY 1 DAYS
     Route: 065
  328. RITUXIMAB [Suspect]
     Active Substance: RITUXIMAB
     Route: 065
  329. RITUXIMAB [Suspect]
     Active Substance: RITUXIMAB
     Route: 042
  330. RITUXIMAB [Suspect]
     Active Substance: RITUXIMAB
     Indication: Rheumatoid arthritis
     Dosage: 2 G, Q24H
     Route: 042
  331. RITUXIMAB [Suspect]
     Active Substance: RITUXIMAB
     Route: 065
  332. RITUXIMAB [Suspect]
     Active Substance: RITUXIMAB
     Route: 065
  333. RITUXIMAB [Suspect]
     Active Substance: RITUXIMAB
     Dosage: 2000 MG, QD (1 EVERY 1 DAYS)
     Route: 065
  334. RITUXIMAB [Suspect]
     Active Substance: RITUXIMAB
     Dosage: 2000 MG, Q24H
     Route: 042
  335. RITUXIMAB [Suspect]
     Active Substance: RITUXIMAB
     Dosage: 2000 MG, Q24H
     Route: 042
  336. RITUXIMAB [Suspect]
     Active Substance: RITUXIMAB
     Route: 019
  337. RITUXIMAB [Suspect]
     Active Substance: RITUXIMAB
     Route: 065
  338. RITUXIMAB [Suspect]
     Active Substance: RITUXIMAB
     Dosage: 365, Q24H
     Route: 065
  339. RITUXIMAB [Suspect]
     Active Substance: RITUXIMAB
     Route: 058
  340. RITUXIMAB [Suspect]
     Active Substance: RITUXIMAB
     Route: 016
  341. RITUXIMAB [Suspect]
     Active Substance: RITUXIMAB
     Route: 016
  342. RITUXIMAB [Suspect]
     Active Substance: RITUXIMAB
     Route: 016
  343. RITUXIMAB [Suspect]
     Active Substance: RITUXIMAB
     Route: 042
  344. RITUXIMAB [Suspect]
     Active Substance: RITUXIMAB
     Route: 042
  345. RITUXIMAB [Suspect]
     Active Substance: RITUXIMAB
     Route: 042
  346. RITUXIMAB [Suspect]
     Active Substance: RITUXIMAB
     Route: 042
  347. RITUXIMAB [Suspect]
     Active Substance: RITUXIMAB
     Route: 042
  348. RITUXIMAB [Suspect]
     Active Substance: RITUXIMAB
     Route: 065
  349. RITUXIMAB [Suspect]
     Active Substance: RITUXIMAB
     Route: 065
  350. RITUXIMAB [Suspect]
     Active Substance: RITUXIMAB
     Route: 065
  351. RITUXIMAB [Suspect]
     Active Substance: RITUXIMAB
     Route: 065
  352. RITUXIMAB [Suspect]
     Active Substance: RITUXIMAB
     Route: 065
  353. RITUXIMAB [Suspect]
     Active Substance: RITUXIMAB
     Route: 065
  354. RITUXIMAB [Suspect]
     Active Substance: RITUXIMAB
     Route: 065
  355. RITUXIMAB [Suspect]
     Active Substance: RITUXIMAB
     Route: 065
  356. RITUXIMAB [Suspect]
     Active Substance: RITUXIMAB
     Route: 065
  357. RITUXIMAB [Suspect]
     Active Substance: RITUXIMAB
     Indication: Rheumatoid arthritis
     Route: 016
  358. RITUXIMAB [Suspect]
     Active Substance: RITUXIMAB
     Route: 016
  359. RITUXIMAB [Suspect]
     Active Substance: RITUXIMAB
     Route: 016
  360. RITUXIMAB [Suspect]
     Active Substance: RITUXIMAB
     Route: 042
  361. RITUXIMAB [Suspect]
     Active Substance: RITUXIMAB
     Route: 042
  362. RITUXIMAB [Suspect]
     Active Substance: RITUXIMAB
     Route: 042
  363. RITUXIMAB [Suspect]
     Active Substance: RITUXIMAB
     Route: 042
  364. RITUXIMAB [Suspect]
     Active Substance: RITUXIMAB
     Route: 042
  365. RITUXIMAB [Suspect]
     Active Substance: RITUXIMAB
     Route: 042
  366. RITUXIMAB [Suspect]
     Active Substance: RITUXIMAB
     Route: 043
  367. RITUXIMAB [Suspect]
     Active Substance: RITUXIMAB
     Route: 043
  368. RITUXIMAB [Suspect]
     Active Substance: RITUXIMAB
     Route: 043
  369. RITUXIMAB [Suspect]
     Active Substance: RITUXIMAB
     Route: 043
  370. RITUXIMAB [Suspect]
     Active Substance: RITUXIMAB
     Route: 058
  371. RITUXIMAB [Suspect]
     Active Substance: RITUXIMAB
     Route: 058
  372. RITUXIMAB [Suspect]
     Active Substance: RITUXIMAB
     Route: 058
  373. RITUXIMAB [Suspect]
     Active Substance: RITUXIMAB
     Route: 058
  374. RITUXIMAB [Suspect]
     Active Substance: RITUXIMAB
     Route: 065
  375. RITUXIMAB [Suspect]
     Active Substance: RITUXIMAB
     Route: 065
  376. RAMIPRIL [Suspect]
     Active Substance: RAMIPRIL
     Route: 016
  377. RAMIPRIL [Suspect]
     Active Substance: RAMIPRIL
     Indication: Rheumatoid arthritis
     Route: 042
  378. RAMIPRIL [Suspect]
     Active Substance: RAMIPRIL
     Route: 065
  379. RANITIDINE [Suspect]
     Active Substance: RANITIDINE
     Indication: Product used for unknown indication
     Route: 065
  380. CETIRIZINE HYDROCHLORIDE\PSEUDOEPHEDRINE HYDROCHLORIDE [Suspect]
     Active Substance: CETIRIZINE HYDROCHLORIDE\PSEUDOEPHEDRINE HYDROCHLORIDE
     Indication: Rheumatoid arthritis
     Route: 065
  381. CETIRIZINE HYDROCHLORIDE\PSEUDOEPHEDRINE HYDROCHLORIDE [Suspect]
     Active Substance: CETIRIZINE HYDROCHLORIDE\PSEUDOEPHEDRINE HYDROCHLORIDE
     Route: 065
  382. CETIRIZINE HYDROCHLORIDE\PSEUDOEPHEDRINE HYDROCHLORIDE [Suspect]
     Active Substance: CETIRIZINE HYDROCHLORIDE\PSEUDOEPHEDRINE HYDROCHLORIDE
     Route: 065
  383. CETIRIZINE HYDROCHLORIDE\PSEUDOEPHEDRINE HYDROCHLORIDE [Suspect]
     Active Substance: CETIRIZINE HYDROCHLORIDE\PSEUDOEPHEDRINE HYDROCHLORIDE
     Route: 065
  384. CETIRIZINE HYDROCHLORIDE\PSEUDOEPHEDRINE HYDROCHLORIDE [Suspect]
     Active Substance: CETIRIZINE HYDROCHLORIDE\PSEUDOEPHEDRINE HYDROCHLORIDE
     Route: 065
  385. CETIRIZINE HYDROCHLORIDE\PSEUDOEPHEDRINE HYDROCHLORIDE [Suspect]
     Active Substance: CETIRIZINE HYDROCHLORIDE\PSEUDOEPHEDRINE HYDROCHLORIDE
     Route: 042
  386. CETIRIZINE HYDROCHLORIDE\PSEUDOEPHEDRINE HYDROCHLORIDE [Suspect]
     Active Substance: CETIRIZINE HYDROCHLORIDE\PSEUDOEPHEDRINE HYDROCHLORIDE
     Route: 065
  387. REMICADE [Suspect]
     Active Substance: INFLIXIMAB
     Route: 042
  388. REMICADE [Suspect]
     Active Substance: INFLIXIMAB
     Route: 042
  389. REMICADE [Suspect]
     Active Substance: INFLIXIMAB
     Route: 042
  390. REMICADE [Suspect]
     Active Substance: INFLIXIMAB
     Indication: Rheumatoid arthritis
     Route: 042
  391. REMICADE [Suspect]
     Active Substance: INFLIXIMAB
     Route: 042
  392. REMICADE [Suspect]
     Active Substance: INFLIXIMAB
     Route: 058
  393. REMICADE [Suspect]
     Active Substance: INFLIXIMAB
     Route: 058
  394. REMICADE [Suspect]
     Active Substance: INFLIXIMAB
     Route: 065
  395. REMICADE [Suspect]
     Active Substance: INFLIXIMAB
     Route: 065
  396. SULFASALAZINE [Suspect]
     Active Substance: SULFASALAZINE
     Indication: Rheumatoid arthritis
     Route: 065
  397. SIMPONI [Suspect]
     Active Substance: GOLIMUMAB
     Route: 058
  398. SIMPONI [Suspect]
     Active Substance: GOLIMUMAB
     Route: 065
  399. SIMPONI [Suspect]
     Active Substance: GOLIMUMAB
     Route: 058
  400. SIMPONI [Suspect]
     Active Substance: GOLIMUMAB
     Indication: Rheumatoid arthritis
     Route: 065
  401. SIMPONI [Suspect]
     Active Substance: GOLIMUMAB
     Route: 065
  402. SIRUKUMAB [Suspect]
     Active Substance: SIRUKUMAB
     Indication: Product used for unknown indication
     Route: 065
  403. SIRUKUMAB [Suspect]
     Active Substance: SIRUKUMAB
     Route: 065
  404. GOLD SODIUM THIOMALATE [Suspect]
     Active Substance: GOLD SODIUM THIOMALATE
     Indication: Product used for unknown indication
     Route: 048
  405. GOLD SODIUM THIOMALATE [Suspect]
     Active Substance: GOLD SODIUM THIOMALATE
     Route: 065
  406. GOLD SODIUM THIOMALATE [Suspect]
     Active Substance: GOLD SODIUM THIOMALATE
     Route: 065
  407. STELARA [Suspect]
     Active Substance: USTEKINUMAB
     Route: 065
  408. STELARA [Suspect]
     Active Substance: USTEKINUMAB
     Indication: Rheumatoid arthritis
     Route: 058
  409. STELARA [Suspect]
     Active Substance: USTEKINUMAB
     Route: 065
  410. SULFASALAZINE [Suspect]
     Active Substance: SULFASALAZINE
     Route: 058
  411. SULFASALAZINE [Suspect]
     Active Substance: SULFASALAZINE
     Route: 065
  412. SULFASALAZINE [Suspect]
     Active Substance: SULFASALAZINE
     Route: 048
  413. SULFASALAZINE [Suspect]
     Active Substance: SULFASALAZINE
     Route: 058
  414. SULFASALAZINE [Suspect]
     Active Substance: SULFASALAZINE
     Route: 048
  415. SULFASALAZINE [Suspect]
     Active Substance: SULFASALAZINE
     Route: 048
  416. SULFASALAZINE [Suspect]
     Active Substance: SULFASALAZINE
     Route: 048
  417. SULFASALAZINE [Suspect]
     Active Substance: SULFASALAZINE
     Route: 058
  418. SULFASALAZINE [Suspect]
     Active Substance: SULFASALAZINE
     Route: 058
  419. SULFASALAZINE [Suspect]
     Active Substance: SULFASALAZINE
     Route: 058
  420. SULFASALAZINE [Suspect]
     Active Substance: SULFASALAZINE
     Route: 065
  421. SULFASALAZINE [Suspect]
     Active Substance: SULFASALAZINE
     Route: 048
  422. SULFASALAZINE [Suspect]
     Active Substance: SULFASALAZINE
     Route: 048
  423. SULFASALAZINE [Suspect]
     Active Substance: SULFASALAZINE
     Route: 048
  424. SULFASALAZINE [Suspect]
     Active Substance: SULFASALAZINE
     Route: 048
  425. SULFASALAZINE [Suspect]
     Active Substance: SULFASALAZINE
     Route: 048
  426. SULFASALAZINE [Suspect]
     Active Substance: SULFASALAZINE
     Route: 048
  427. SULFASALAZINE [Suspect]
     Active Substance: SULFASALAZINE
     Route: 065
  428. SULFASALAZINE [Suspect]
     Active Substance: SULFASALAZINE
     Route: 058
  429. SULFASALAZINE [Suspect]
     Active Substance: SULFASALAZINE
     Route: 058
  430. SULFASALAZINE [Suspect]
     Active Substance: SULFASALAZINE
     Route: 058
  431. SULFASALAZINE [Suspect]
     Active Substance: SULFASALAZINE
     Indication: Rheumatoid arthritis
     Route: 048
  432. SULFASALAZINE [Suspect]
     Active Substance: SULFASALAZINE
     Route: 016
  433. SULFASALAZINE [Suspect]
     Active Substance: SULFASALAZINE
     Route: 048
  434. SULFASALAZINE [Suspect]
     Active Substance: SULFASALAZINE
     Route: 058
  435. SULFASALAZINE [Suspect]
     Active Substance: SULFASALAZINE
     Route: 065
  436. SULFASALAZINE [Suspect]
     Active Substance: SULFASALAZINE
     Route: 065
  437. SULFASALAZINE [Suspect]
     Active Substance: SULFASALAZINE
     Route: 065
  438. SULFASALAZINE [Suspect]
     Active Substance: SULFASALAZINE
     Route: 065
  439. SULFASALAZINE [Suspect]
     Active Substance: SULFASALAZINE
     Route: 065
  440. SULFASALAZINE [Suspect]
     Active Substance: SULFASALAZINE
     Route: 065
  441. TETRACYCLINE HYDROCHLORIDE [Suspect]
     Active Substance: TETRACYCLINE HYDROCHLORIDE
     Route: 065
  442. TETRACYCLINE HYDROCHLORIDE [Suspect]
     Active Substance: TETRACYCLINE HYDROCHLORIDE
     Indication: Rheumatoid arthritis
     Route: 065
  443. TOCILIZUMAB [Suspect]
     Active Substance: TOCILIZUMAB
     Route: 065
  444. TOCILIZUMAB [Suspect]
     Active Substance: TOCILIZUMAB
     Route: 065
  445. TOCILIZUMAB [Suspect]
     Active Substance: TOCILIZUMAB
     Route: 058
  446. TOCILIZUMAB [Suspect]
     Active Substance: TOCILIZUMAB
     Route: 016
  447. TOCILIZUMAB [Suspect]
     Active Substance: TOCILIZUMAB
     Route: 042
  448. TOCILIZUMAB [Suspect]
     Active Substance: TOCILIZUMAB
     Indication: Rheumatoid arthritis
     Route: 042
  449. TOCILIZUMAB [Suspect]
     Active Substance: TOCILIZUMAB
     Route: 058
  450. TOCILIZUMAB [Suspect]
     Active Substance: TOCILIZUMAB
     Route: 065
  451. TOFACITINIB CITRATE [Suspect]
     Active Substance: TOFACITINIB CITRATE
     Route: 048
  452. TOFACITINIB CITRATE [Suspect]
     Active Substance: TOFACITINIB CITRATE
     Route: 048
  453. TOFACITINIB CITRATE [Suspect]
     Active Substance: TOFACITINIB CITRATE
     Route: 048
  454. TOFACITINIB CITRATE [Suspect]
     Active Substance: TOFACITINIB CITRATE
     Route: 048
  455. TOFACITINIB CITRATE [Suspect]
     Active Substance: TOFACITINIB CITRATE
     Route: 048
  456. TOFACITINIB CITRATE [Suspect]
     Active Substance: TOFACITINIB CITRATE
     Route: 048
  457. TOFACITINIB CITRATE [Suspect]
     Active Substance: TOFACITINIB CITRATE
     Indication: Rheumatoid arthritis
     Route: 065
  458. TOFACITINIB CITRATE [Suspect]
     Active Substance: TOFACITINIB CITRATE
     Route: 065
  459. TOFACITINIB CITRATE [Suspect]
     Active Substance: TOFACITINIB CITRATE
     Route: 065
  460. TOPIRAMATE [Suspect]
     Active Substance: TOPIRAMATE
     Route: 065
  461. TOPIRAMATE [Suspect]
     Active Substance: TOPIRAMATE
     Route: 065
  462. TOPIRAMATE [Suspect]
     Active Substance: TOPIRAMATE
     Route: 065
  463. TOPIRAMATE [Suspect]
     Active Substance: TOPIRAMATE
     Indication: Rheumatoid arthritis
     Route: 065
  464. TRAMADOL HYDROCHLORIDE [Suspect]
     Active Substance: TRAMADOL HYDROCHLORIDE
     Indication: Product used for unknown indication
     Route: 065
  465. TRAMADOL HYDROCHLORIDE [Suspect]
     Active Substance: TRAMADOL HYDROCHLORIDE
     Route: 065
  466. TRIAMCINOLONE ACETONIDE [Suspect]
     Active Substance: TRIAMCINOLONE ACETONIDE
     Indication: Rheumatoid arthritis
     Route: 013
  467. USTEKINUMAB [Suspect]
     Active Substance: USTEKINUMAB
     Route: 058
  468. USTEKINUMAB [Suspect]
     Active Substance: USTEKINUMAB
     Route: 065
  469. USTEKINUMAB [Suspect]
     Active Substance: USTEKINUMAB
     Indication: Product used for unknown indication
     Route: 058
  470. XELJANZ [Suspect]
     Active Substance: TOFACITINIB CITRATE
     Indication: Rheumatoid arthritis
     Route: 048
  471. XELJANZ [Suspect]
     Active Substance: TOFACITINIB CITRATE
     Route: 065
  472. XELJANZ [Suspect]
     Active Substance: TOFACITINIB CITRATE
     Route: 048
  473. XELJANZ [Suspect]
     Active Substance: TOFACITINIB CITRATE
     Route: 048
  474. XELJANZ [Suspect]
     Active Substance: TOFACITINIB CITRATE
     Route: 065
  475. XELJANZ [Suspect]
     Active Substance: TOFACITINIB CITRATE
     Route: 065
  476. XELJANZ [Suspect]
     Active Substance: TOFACITINIB CITRATE
     Route: 065
  477. XELJANZ [Suspect]
     Active Substance: TOFACITINIB CITRATE
     Route: 065

REACTIONS (52)
  - Pneumonia [Fatal]
  - Liver function test increased [Fatal]
  - Mobility decreased [Fatal]
  - Muscular weakness [Fatal]
  - Neck pain [Fatal]
  - Pain in extremity [Fatal]
  - Finger deformity [Fatal]
  - Folliculitis [Fatal]
  - Gastrooesophageal reflux disease [Fatal]
  - Hypoaesthesia [Fatal]
  - Inflammation [Fatal]
  - Injury [Fatal]
  - Fatigue [Fatal]
  - Alopecia [Fatal]
  - Dyspepsia [Fatal]
  - Condition aggravated [Fatal]
  - C-reactive protein abnormal [Fatal]
  - Anti-cyclic citrullinated peptide antibody positive [Fatal]
  - Onychomycosis [Fatal]
  - Ill-defined disorder [Fatal]
  - Dyspnoea [Fatal]
  - Pain [Fatal]
  - Stomatitis [Fatal]
  - Liver injury [Fatal]
  - Type 2 diabetes mellitus [Fatal]
  - Pericarditis [Fatal]
  - Rheumatic fever [Fatal]
  - Lower respiratory tract infection [Fatal]
  - Pemphigus [Fatal]
  - Obesity [Fatal]
  - Abdominal distension [Fatal]
  - Abdominal discomfort [Fatal]
  - Blood cholesterol increased [Fatal]
  - Arthropathy [Fatal]
  - Contusion [Fatal]
  - Systemic lupus erythematosus [Fatal]
  - Arthralgia [Fatal]
  - Psoriatic arthropathy [Fatal]
  - Rash [Fatal]
  - Rheumatoid arthritis [Fatal]
  - Drug-induced liver injury [Fatal]
  - Adverse reaction [Fatal]
  - Overdose [Fatal]
  - Underdose [Fatal]
  - Product use issue [Fatal]
  - Off label use [Fatal]
  - Off label use [Fatal]
  - Intentional product use issue [Fatal]
  - Intentional product use issue [Fatal]
  - Intentional product use issue [Fatal]
  - Intentional product use issue [Fatal]
  - Incorrect product administration duration [Fatal]
